FAERS Safety Report 8801191 (Version 1)
Quarter: 2012Q4

REPORT INFORMATION
  Report Type: 
  Country: US (occurrence: US)
  Receive Date: 20120920
  Receipt Date: 20120920
  Transmission Date: 20130627
  Serious: Yes (Death, Other)
  Sender: FDA-Public Use
  Company Number: US-009507513-2010SP042173

PATIENT
  Age: 55 None
  Sex: Male

DRUGS (14)
  1. SAPHRIS [Suspect]
     Indication: SCHIZOPHRENIA
     Dosage: 5 mg, hs
     Route: 060
     Dates: start: 20100714
  2. SAPHRIS [Suspect]
     Indication: BIPOLAR I DISORDER
     Dosage: 5 mg, hs
     Route: 060
     Dates: start: 20100714
  3. SAPHRIS [Suspect]
     Dosage: 10 mg, BID
     Route: 060
     Dates: end: 20100729
  4. SAPHRIS [Suspect]
     Dosage: 10 mg, BID
     Route: 060
     Dates: end: 20100729
  5. HYDROCODONE [Concomitant]
     Indication: CANCER PAIN
     Dosage: 5 TABLETS A DAY (10/325)
     Route: 048
  6. SYNTHROID [Concomitant]
     Indication: PRODUCT USED FOR UNKNOWN INDICATION
     Dosage: 0.15
  7. DEPAKOTE [Concomitant]
     Indication: PRODUCT USED FOR UNKNOWN INDICATION
  8. LIDODERM [Concomitant]
     Indication: THROAT CANCER
  9. XANAX [Concomitant]
     Indication: THROAT CANCER
     Dosage: 1 mg, TID
  10. NEXIUM [Concomitant]
     Indication: PRODUCT USED FOR UNKNOWN INDICATION
  11. PAXIL [Concomitant]
     Indication: PRODUCT USED FOR UNKNOWN INDICATION
  12. LORCET [Concomitant]
     Indication: PRODUCT USED FOR UNKNOWN INDICATION
  13. NYSTATIN [Concomitant]
     Indication: PRODUCT USED FOR UNKNOWN INDICATION
  14. VALPROIC ACID [Concomitant]
     Indication: PRODUCT USED FOR UNKNOWN INDICATION

REACTIONS (13)
  - Completed suicide [Fatal]
  - Hallucination [Fatal]
  - Suicidal ideation [Unknown]
  - Paranoia [Unknown]
  - Alcohol abuse [Unknown]
  - Anger [Unknown]
  - Logorrhoea [Unknown]
  - Agitation [Unknown]
  - Nervousness [Unknown]
  - Inappropriate schedule of drug administration [Unknown]
  - Underdose [Unknown]
  - Gun shot wound [Fatal]
  - Self injurious behaviour [Fatal]
